FAERS Safety Report 8313765-3 (Version None)
Quarter: 2012Q2

REPORT INFORMATION
  Report Type: 
  Country: None (occurrence: None)
  Receive Date: 20120426
  Receipt Date: 20120423
  Transmission Date: 20120825
  Serious: Yes (Death)
  Sender: FDA-Public Use
  Company Number: DE-JNJFOC-20120214006

PATIENT
  Sex: Female

DRUGS (35)
  1. DOXORUBICIN HCL [Suspect]
     Route: 040
  2. CORTICOSTEROIDS [Concomitant]
     Route: 065
  3. CIPROFLOXACIN [Concomitant]
     Indication: PROPHYLAXIS
     Route: 048
  4. CIPROFLOXACIN [Concomitant]
     Route: 048
  5. CORTICOSTEROIDS [Concomitant]
     Indication: PREMEDICATION
     Route: 065
  6. CORTICOSTEROIDS [Concomitant]
     Route: 065
  7. DOXORUBICIN HCL [Suspect]
     Route: 040
  8. DOXORUBICIN HCL [Suspect]
     Route: 040
  9. DOXORUBICIN HCL [Suspect]
     Route: 040
  10. DOCETAXEL [Suspect]
     Route: 042
  11. CIPROFLOXACIN [Concomitant]
     Route: 048
  12. DOXORUBICIN HCL [Suspect]
     Route: 040
  13. CYCLOPHOSPHAMIDE [Suspect]
     Route: 042
  14. CYCLOPHOSPHAMIDE [Suspect]
     Route: 042
  15. CYCLOPHOSPHAMIDE [Suspect]
     Route: 042
  16. CORTICOSTEROIDS [Concomitant]
     Route: 065
  17. ANTIEMETIC [Concomitant]
     Indication: PROPHYLAXIS
     Route: 065
  18. CIPROFLOXACIN [Concomitant]
     Route: 048
  19. DOXORUBICIN HCL [Suspect]
     Route: 040
  20. DOCETAXEL [Suspect]
     Indication: BREAST CANCER
     Route: 042
  21. DOCETAXEL [Suspect]
     Route: 042
  22. CYCLOPHOSPHAMIDE [Suspect]
     Route: 042
  23. DOXORUBICIN HCL [Suspect]
     Route: 040
  24. DOXORUBICIN HCL [Suspect]
     Indication: BREAST CANCER
     Route: 040
  25. DOXORUBICIN HCL [Suspect]
     Route: 040
  26. DOXORUBICIN HCL [Suspect]
     Route: 040
  27. DOXORUBICIN HCL [Suspect]
     Route: 040
  28. DOCETAXEL [Suspect]
     Route: 042
  29. DOCETAXEL [Suspect]
     Route: 042
  30. CYCLOPHOSPHAMIDE [Suspect]
     Route: 042
  31. CIPROFLOXACIN [Concomitant]
     Route: 048
  32. DOXORUBICIN HCL [Suspect]
     Route: 040
  33. DOCETAXEL [Suspect]
     Route: 042
  34. CYCLOPHOSPHAMIDE [Suspect]
     Indication: BREAST CANCER
     Route: 042
  35. CIPROFLOXACIN [Concomitant]
     Route: 048

REACTIONS (1)
  - SEPSIS [None]
